FAERS Safety Report 4991696-4 (Version None)
Quarter: 2006Q2

REPORT INFORMATION
  Report Type: 
  Country: None (occurrence: None)
  Receive Date: 20060504
  Receipt Date: 20060502
  Transmission Date: 20061013
  Serious: Yes (Other)
  Sender: FDA-Public Use
  Company Number: US-GLAXOSMITHKLINE-A0604064A

PATIENT
  Age: 66 Year
  Sex: Male

DRUGS (9)
  1. AVODART [Suspect]
     Dosage: .5MG PER DAY
     Route: 048
     Dates: start: 20051012
  2. ASPIRIN [Concomitant]
  3. MULTI-VITAMIN [Concomitant]
  4. FLAX SEED OIL [Concomitant]
  5. CALCIUM GLUCONATE [Concomitant]
  6. ASCORBIC ACID [Concomitant]
  7. VITAMIN E [Concomitant]
  8. OMEGA 3 FISH OIL [Concomitant]
  9. BILBERRY [Concomitant]

REACTIONS (2)
  - DRUG INEFFECTIVE [None]
  - NEPHROLITHIASIS [None]
